FAERS Safety Report 25684124 (Version 3)
Quarter: 2025Q4

REPORT INFORMATION
  Report Type: Spontaneous
  Country: EU (occurrence: EU)
  Receive Date: 20250815
  Receipt Date: 20251105
  Transmission Date: 20260117
  Serious: Yes (Hospitalization, Other)
  Sender: ASTELLAS
  Company Number: EU-MENARINI-ES-MEN-116156

PATIENT
  Age: 55 Year
  Sex: Male
  Weight: 61 kg

DRUGS (3)
  1. ENZALUTAMIDE [Suspect]
     Active Substance: ENZALUTAMIDE
     Indication: Prostate cancer
     Dosage: AT CYCLE 1
     Route: 048
     Dates: start: 20250709, end: 20250729
  2. ENZALUTAMIDE [Suspect]
     Active Substance: ENZALUTAMIDE
     Dosage: AT CYCLE 2
     Route: 048
     Dates: start: 20250730, end: 20250804
  3. DEXKETOPROFEN TROMETAMOL [Suspect]
     Active Substance: DEXKETOPROFEN TROMETAMOL
     Indication: Antiinflammatory therapy
     Dosage: THRICE A DAY
     Route: 048
     Dates: start: 202506, end: 20250729

REACTIONS (2)
  - Haematemesis [Recovering/Resolving]
  - Incorrect product administration duration [Recovered/Resolved]

NARRATIVE: CASE EVENT DATE: 20250601
